FAERS Safety Report 6634669-8 (Version None)
Quarter: 2010Q1

REPORT INFORMATION
  Report Type: 
  Country: None (occurrence: None)
  Receive Date: 20100315
  Receipt Date: 20100310
  Transmission Date: 20100710
  Serious: Yes (Other)
  Sender: FDA-Public Use
  Company Number: US-SANOFI-AVENTIS-2010SA014271

PATIENT
  Age: 79 Year
  Sex: Female

DRUGS (3)
  1. PLAVIX [Suspect]
     Route: 048
     Dates: start: 20090901
  2. INSULIN [Concomitant]
  3. ANTIHYPERTENSIVES [Concomitant]

REACTIONS (7)
  - EROSIVE OESOPHAGITIS [None]
  - GASTROOESOPHAGEAL REFLUX DISEASE [None]
  - HYPERTENSION [None]
  - JOINT SWELLING [None]
  - OESOPHAGEAL STENOSIS [None]
  - PALPITATIONS [None]
  - PARAESTHESIA [None]
